FAERS Safety Report 6760681-4 (Version None)
Quarter: 2010Q2

REPORT INFORMATION
  Report Type: 
  Country: None (occurrence: None)
  Receive Date: 20100608
  Receipt Date: 20100601
  Transmission Date: 20101027
  Serious: Yes (Hospitalization, Congenital Anomaly)
  Sender: FDA-Public Use
  Company Number: FR-ABBOTT-03P-056-0229272-00

PATIENT
  Sex: Male
  Weight: 5.9 kg

DRUGS (2)
  1. KALETRA [Suspect]
     Indication: DRUG EXPOSURE DURING PREGNANCY
  2. NEVIRAPINE [Concomitant]
     Indication: PROPHYLAXIS AGAINST HIV INFECTION
     Route: 048

REACTIONS (6)
  - BLOOD CREATINE PHOSPHOKINASE INCREASED [None]
  - BLOOD LACTIC ACID INCREASED [None]
  - FEEDING DISORDER NEONATAL [None]
  - HYPOTONIA [None]
  - LIPASE INCREASED [None]
  - TALIPES [None]
